FAERS Safety Report 15395867 (Version 1)
Quarter: 2018Q3

REPORT INFORMATION
  Report Type: Spontaneous
  Country: US (occurrence: US)
  Receive Date: 20180912
  Receipt Date: 20180912
  Transmission Date: 20181010
  Serious: Yes (Other)
  Sender: FDA-Public Use
  Company Number: None

PATIENT
  Age: 41 Year
  Sex: Female
  Weight: 56.7 kg

DRUGS (1)
  1. BOTULINUM TOXIN TYPE A (BOTOX) 155 U [Suspect]
     Active Substance: BOTULINUM TOXIN TYPE A
     Indication: MIGRAINE WITH AURA
     Dates: start: 20180814

REACTIONS (7)
  - Hordeolum [None]
  - Lymphadenopathy [None]
  - Swelling [None]
  - Brain oedema [None]
  - Eyelid pain [None]
  - Swelling face [None]
  - Ear infection [None]

NARRATIVE: CASE EVENT DATE: 20180814
